FAERS Safety Report 9275781 (Version 1)
Quarter: 2013Q2

REPORT INFORMATION
  Report Type: Spontaneous
  Country: BR (occurrence: BR)
  Receive Date: 20130507
  Receipt Date: 20130507
  Transmission Date: 20140414
  Serious: Yes (Other)
  Sender: FDA-Public Use
  Company Number: BR-JNJFOC-20130503260

PATIENT
  Age: 63 Year
  Sex: Male
  Weight: 73 kg

DRUGS (5)
  1. XARELTO [Suspect]
     Indication: ARRHYTHMIA
     Route: 048
     Dates: start: 201302
  2. TRAZODONE HYDROCHLORIDE [Suspect]
     Indication: ANXIETY
     Route: 048
     Dates: start: 201303, end: 20130412
  3. DILTIAZEM [Concomitant]
     Indication: ARRHYTHMIA
     Route: 048
     Dates: start: 2010
  4. AMOXICILLIN [Concomitant]
     Indication: TOOTH DISORDER
     Route: 048
  5. ALPRAZOLAM [Concomitant]
     Indication: ANTIDEPRESSANT THERAPY
     Route: 048
     Dates: start: 201303

REACTIONS (4)
  - Blood pressure decreased [Not Recovered/Not Resolved]
  - Local swelling [Recovered/Resolved]
  - Anxiety [Unknown]
  - Off label use [Unknown]
